FAERS Safety Report 22203212 (Version 2)
Quarter: 2023Q2

REPORT INFORMATION
  Report Type: Spontaneous
  Country: CL (occurrence: CL)
  Receive Date: 20230412
  Receipt Date: 20230504
  Transmission Date: 20230722
  Serious: Yes (Other)
  Sender: FDA-Public Use
  Company Number: CL-BIOMARINAP-CL-2023-149376

PATIENT

DRUGS (1)
  1. VIMIZIM [Suspect]
     Active Substance: ELOSULFASE ALFA
     Indication: Mucopolysaccharidosis IV
     Dosage: 75 MILLIGRAM, QW
     Route: 042
     Dates: start: 20150930

REACTIONS (1)
  - Device occlusion [Recovered/Resolved]

NARRATIVE: CASE EVENT DATE: 20230306
